FAERS Safety Report 9556423 (Version 2)
Quarter: 2013Q4

REPORT INFORMATION
  Report Type: Report from Study
  Country: US (occurrence: US)
  Receive Date: 20130926
  Receipt Date: 20131216
  Transmission Date: 20140711
  Serious: Yes (Hospitalization, Other)
  Sender: FDA-Public Use
  Company Number: US-SANOFI-AVENTIS-2013SA094746

PATIENT
  Sex: Female

DRUGS (1)
  1. AUBAGIO [Suspect]
     Route: 048
     Dates: start: 20130611

REACTIONS (5)
  - Cerebrospinal fluid leakage [Unknown]
  - Spinal laminectomy [Unknown]
  - CSF pressure increased [Unknown]
  - Hepatic enzyme increased [Unknown]
  - Nausea [Unknown]
